FAERS Safety Report 17053098 (Version 1)
Quarter: 2019Q4

REPORT INFORMATION
  Report Type: Spontaneous
  Country: US (occurrence: US)
  Receive Date: 20191120
  Receipt Date: 20191120
  Transmission Date: 20200122
  Serious: No
  Sender: FDA-Public Use
  Company Number: US-PFIZER INC-2019498960

PATIENT
  Age: 73 Year
  Sex: Female
  Weight: 72.2 kg

DRUGS (3)
  1. SUTENT [Suspect]
     Active Substance: SUNITINIB MALATE
     Dosage: 37 MG, UNK
     Dates: end: 201812
  2. SUTENT [Suspect]
     Active Substance: SUNITINIB MALATE
     Indication: PAPILLARY RENAL CELL CARCINOMA
     Dosage: 50 MG, UNK
     Dates: start: 20181003
  3. OPDIVO [Concomitant]
     Active Substance: NIVOLUMAB
     Dosage: 480 MG, CYCLIC (480 MG INFUSION EVERY 28 DAYS)
     Dates: start: 201901

REACTIONS (2)
  - Malaise [Unknown]
  - Neoplasm progression [Unknown]
